FAERS Safety Report 9444425 (Version 3)
Quarter: 2013Q3

REPORT INFORMATION
  Report Type: Spontaneous
  Country: US (occurrence: None)
  Receive Date: 20130805
  Receipt Date: 20130809
  Transmission Date: 20140515
  Serious: Yes (Other)
  Sender: FDA-Public Use
  Company Number: USA/USA/13/0033592

PATIENT
  Age: 67 Year
  Sex: Male
  Weight: 90.72 kg

DRUGS (6)
  1. OMEPRAZOLE MAGNESIUM [Suspect]
     Indication: NON-CARDIAC CHEST PAIN
     Dosage: 1 IN 1 D
     Route: 048
     Dates: start: 20130718, end: 20130720
  2. RAMIPRIL 5 MG (RAMIPRIL) [Concomitant]
  3. ATORVASTATIN [Concomitant]
  4. ASPIRIN (ACETYLSALICYLIC ACID) [Concomitant]
  5. MAGNESIUM (MAGNESIUM) [Concomitant]
  6. ATENOLOL (ATENOLOL) [Concomitant]

REACTIONS (2)
  - Anxiety [None]
  - Personality change [None]
